FAERS Safety Report 6394695-3 (Version None)
Quarter: 2009Q4

REPORT INFORMATION
  Report Type: 
  Country: None (occurrence: None)
  Receive Date: 20091009
  Receipt Date: 20090928
  Transmission Date: 20100525
  Serious: Yes (Hospitalization, Other)
  Sender: FDA-Public Use
  Company Number: PHHY2009JP28228

PATIENT
  Sex: Male

DRUGS (9)
  1. AMN107 AMN+CAP [Suspect]
     Indication: CHRONIC MYELOID LEUKAEMIA
     Dosage: 400 MG DAILY
     Route: 048
     Dates: start: 20090525, end: 20090602
  2. AMN107 AMN+CAP [Suspect]
     Dosage: 800 MG DAILY
     Route: 048
     Dates: start: 20090603
  3. MUCOSTA [Concomitant]
     Dosage: 300 MG, UNK
     Route: 048
     Dates: start: 20090401
  4. SYMMETREL [Concomitant]
     Dosage: 50 MG, UNK
     Route: 048
     Dates: start: 20090401
  5. PANALDINE [Concomitant]
     Dosage: 100 MG, UNK
     Route: 048
     Dates: start: 20090401
  6. AMLODIPINE [Concomitant]
     Dosage: 2.5 MG, UNK
     Route: 048
     Dates: start: 20090401
  7. RENIVACE [Concomitant]
     Dosage: 5 MG, UNK
     Route: 048
     Dates: start: 20090401
  8. STARSIS [Concomitant]
     Dosage: 270 MG, UNK
     Route: 048
     Dates: start: 20090401
  9. LASIX [Concomitant]
     Dosage: 40 MG, UNK
     Route: 048
     Dates: start: 20090401

REACTIONS (6)
  - BLOOD CREATININE INCREASED [None]
  - C-REACTIVE PROTEIN INCREASED [None]
  - GAMMA-GLUTAMYLTRANSFERASE INCREASED [None]
  - GASTROINTESTINAL HAEMORRHAGE [None]
  - PLATELET COUNT INCREASED [None]
  - PNEUMONIA [None]
